FAERS Safety Report 8776024 (Version 3)
Quarter: 2013Q2

REPORT INFORMATION
  Report Type: Spontaneous
  Country: US (occurrence: US)
  Receive Date: 20120910
  Receipt Date: 20130501
  Transmission Date: 20140414
  Serious: Yes (Death, Disabling, Other)
  Sender: FDA-Public Use
  Company Number: US-PFIZER INC-2012220630

PATIENT
  Age: 65 Year
  Sex: Male
  Weight: 46.71 kg

DRUGS (12)
  1. NEURONTIN [Suspect]
     Indication: NEURALGIA
     Dosage: UNK
     Route: 048
  2. LYRICA [Suspect]
     Indication: NEURALGIA
     Dosage: 100 MG, 3X/DAY
     Route: 048
     Dates: start: 2010
  3. LYRICA [Suspect]
     Dosage: UNK
     Route: 048
  4. LYRICA [Suspect]
     Dosage: 100 MG, 2X/DAY
     Route: 048
  5. LYRICA [Suspect]
     Dosage: 100 MG, 3X/DAY
     Route: 048
     Dates: start: 2010
  6. ROXANOL [Concomitant]
     Indication: PAIN
     Dosage: UNK
  7. HYDROCODONE [Concomitant]
     Indication: PAIN
     Dosage: UNK
  8. METHADONE [Concomitant]
     Indication: PAIN
     Dosage: UNK
  9. MORPHINE [Concomitant]
     Dosage: UNK
  10. METOPROLOL [Concomitant]
     Dosage: UNK
  11. TORSEMIDE [Concomitant]
     Dosage: UNK
  12. PREDNISONE [Concomitant]
     Dosage: UNK

REACTIONS (10)
  - Cardiac disorder [Fatal]
  - Lung neoplasm malignant [Fatal]
  - Emphysema [Fatal]
  - Spinal pain [Unknown]
  - Hypoaesthesia [Unknown]
  - Cerebrovascular accident [Unknown]
  - Myocardial infarction [Unknown]
  - Ulcer [Unknown]
  - Gastrointestinal haemorrhage [Unknown]
  - Drug ineffective [Unknown]
